FAERS Safety Report 5675305-7 (Version None)
Quarter: 2008Q2

REPORT INFORMATION
  Report Type: 
  Country: None (occurrence: None)
  Receive Date: 20080307
  Receipt Date: 20070925
  Transmission Date: 20081010
  Serious: Yes (Other)
  Sender: FDA-Public Use
  Company Number: US200709006023

PATIENT
  Age: 50 Year
  Sex: Female

DRUGS (3)
  1. GEMZAR [Suspect]
     Indication: NON-SMALL CELL LUNG CANCER
     Dosage: OTHER
  2. AVASTIN [Concomitant]
  3. CISPLATIN [Concomitant]

REACTIONS (1)
  - PULMONARY TOXICITY [None]
